FAERS Safety Report 14196468 (Version 1)
Quarter: 2017Q4

REPORT INFORMATION
  Report Type: Spontaneous
  Country: US (occurrence: US)
  Receive Date: 20171116
  Receipt Date: 20171116
  Transmission Date: 20180321
  Serious: No
  Sender: FDA-Public Use
  Company Number: US-NOVOPROD-525354

PATIENT
  Age: 79 Year
  Sex: Female

DRUGS (3)
  1. NOVOLOG MIX 70/30 [Suspect]
     Active Substance: INSULIN ASPART
     Dosage: 45 U WITH BREAKFAST + 35 U BEFORE DINNER
     Route: 058
     Dates: start: 20161221
  2. NOVOLOG MIX 70/30 [Suspect]
     Active Substance: INSULIN ASPART
     Indication: TYPE 2 DIABETES MELLITUS
     Dosage: 32 UNITS WITH BREAKFAST, 38 UNITS WITH DINNER
     Route: 058
  3. NOVOLOG MIX 70/30 [Suspect]
     Active Substance: INSULIN ASPART
     Dosage: 40 U WITH BREAKFAST + 30 U WITH DINNER
     Route: 058
     Dates: end: 20161220

REACTIONS (5)
  - Blood glucose increased [Unknown]
  - Hyperhidrosis [Recovered/Resolved]
  - Drug dose omission [Unknown]
  - Anxiety [Unknown]
  - Abdominal discomfort [Not Recovered/Not Resolved]

NARRATIVE: CASE EVENT DATE: 2015
